FAERS Safety Report 16110508 (Version 2)
Quarter: 2020Q1

REPORT INFORMATION
  Report Type: Spontaneous
  Country: FR (occurrence: FR)
  Receive Date: 20190325
  Receipt Date: 20200304
  Transmission Date: 20200409
  Serious: Yes (Hospitalization)
  Sender: FDA-Public Use
  Company Number: FR-ACCORD-115180

PATIENT
  Age: 68 Year
  Sex: Male
  Weight: 88.6 kg

DRUGS (11)
  1. AVODART [Suspect]
     Active Substance: DUTASTERIDE
     Indication: BENIGN PROSTATIC HYPERPLASIA
     Dosage: STRENGTH: 0.5 MG
     Route: 048
     Dates: start: 20180718, end: 20181102
  2. SPIRONOLACTONE. [Suspect]
     Active Substance: SPIRONOLACTONE
     Indication: OEDEMA PERIPHERAL
     Route: 048
     Dates: start: 20181010, end: 20181102
  3. ZOPHREN [Suspect]
     Active Substance: ONDANSETRON
     Indication: VOMITING
     Dosage: STRENGTH: 8 MG
     Route: 048
     Dates: start: 20181025, end: 20181030
  4. AMLODIPINE [Concomitant]
     Active Substance: AMLODIPINE BESYLATE
  5. NEORECORMON [Concomitant]
     Active Substance: ERYTHROPOIETIN
  6. PANTOPRAZOLE [Concomitant]
     Active Substance: PANTOPRAZOLE
  7. ALIMTA [Suspect]
     Active Substance: PEMETREXED DISODIUM
     Indication: PLEURAL MESOTHELIOMA
     Route: 042
     Dates: start: 20181025, end: 20181025
  8. SPECIAFOLDINE [Concomitant]
     Active Substance: FOLIC ACID
  9. APIXABAN [Concomitant]
     Active Substance: APIXABAN
  10. BISOPROLOL [Concomitant]
     Active Substance: BISOPROLOL
  11. FUROSEMIDE. [Suspect]
     Active Substance: FUROSEMIDE
     Indication: OEDEMA PERIPHERAL
     Route: 048
     Dates: start: 20181002, end: 20181102

REACTIONS (2)
  - Pruritus [Recovered/Resolved]
  - Rash maculo-papular [Recovered/Resolved]

NARRATIVE: CASE EVENT DATE: 20181027
